FAERS Safety Report 13269489 (Version 1)
Quarter: 2017Q1

REPORT INFORMATION
  Report Type: Spontaneous
  Country: FR (occurrence: FR)
  Receive Date: 20170224
  Receipt Date: 20170224
  Transmission Date: 20170428
  Serious: Yes (Death, Other)
  Sender: FDA-Public Use
  Company Number: FR-BRISTOL-MYERS SQUIBB COMPANY-BMS-2017-013989

PATIENT
  Age: 53 Year
  Sex: Female

DRUGS (1)
  1. YERVOY [Suspect]
     Active Substance: IPILIMUMAB
     Indication: METASTATIC MALIGNANT MELANOMA
     Dosage: 3 MG/KG, Q3WK
     Route: 042
     Dates: start: 20161207

REACTIONS (4)
  - Hepatitis [Fatal]
  - Pyelonephritis [Unknown]
  - Dyspnoea [Not Recovered/Not Resolved]
  - Acute kidney injury [Fatal]

NARRATIVE: CASE EVENT DATE: 20170117
